FAERS Safety Report 5204483-9 (Version None)
Quarter: 2007Q1

REPORT INFORMATION
  Report Type: 
  Country: None (occurrence: None)
  Receive Date: 20070110
  Receipt Date: 20060411
  Transmission Date: 20070707
  Serious: No
  Sender: FDA-Public Use
  Company Number: US-BRISTOL-MYERS SQUIBB COMPANY-13343231

PATIENT
  Age: 9 Year
  Sex: Male

DRUGS (9)
  1. ABILIFY [Suspect]
     Route: 048
     Dates: start: 20060406
  2. DITROPAN [Concomitant]
  3. RISPERDAL [Concomitant]
     Dates: start: 20060301
  4. ADDERALL 10 [Concomitant]
  5. KEPPRA [Concomitant]
     Dates: start: 20050901
  6. LAMICTAL [Concomitant]
  7. DEPAKOTE [Concomitant]
     Dates: start: 20050201
  8. ZOLOFT [Concomitant]
  9. CLARITIN [Concomitant]

REACTIONS (1)
  - SOMNOLENCE [None]
